FAERS Safety Report 7423592-7 (Version None)
Quarter: 2011Q2

REPORT INFORMATION
  Report Type: 
  Country: None (occurrence: None)
  Receive Date: 20110419
  Receipt Date: 20100927
  Transmission Date: 20111010
  Serious: No
  Sender: FDA-Public Use
  Company Number: US-BRISTOL-MYERS SQUIBB COMPANY-15305097

PATIENT

DRUGS (1)
  1. METAGLIP [Suspect]
     Dosage: COUPLE OF YEARS

REACTIONS (1)
  - ADVERSE EVENT [None]
